FAERS Safety Report 9795722 (Version 1)
Quarter: 2014Q1

REPORT INFORMATION
  Report Type: Report from Study
  Country: TW (occurrence: TW)
  Receive Date: 20140103
  Receipt Date: 20140103
  Transmission Date: 20141002
  Serious: Yes (Hospitalization)
  Sender: FDA-Public Use
  Company Number: TW-BAYER-2013-157912

PATIENT
  Age: 54 Year
  Sex: Male

DRUGS (1)
  1. REGORAFENIB [Suspect]
     Indication: RECTAL CANCER METASTATIC
     Dosage: 160 MG DAILY
     Route: 048
     Dates: start: 20131120, end: 20131210

REACTIONS (1)
  - Pneumonia [None]
